FAERS Safety Report 8927434 (Version 2)
Quarter: 2012Q4

REPORT INFORMATION
  Report Type: Report from Study
  Country: CA (occurrence: CA)
  Receive Date: 20121127
  Receipt Date: 20121128
  Transmission Date: 20130627
  Serious: Yes (Other)
  Sender: FDA-Public Use
  Company Number: CA-ROCHE-1147386

PATIENT
  Age: 63 Year
  Sex: Male
  Weight: 70.82 kg

DRUGS (6)
  1. BEVACIZUMAB [Suspect]
     Indication: GLIOBLASTOMA
     Route: 042
     Dates: start: 20120821, end: 20121108
  2. DILANTIN [Concomitant]
  3. MICARDIS [Concomitant]
  4. AMLODIPINE [Concomitant]
  5. ALENDRONATE [Concomitant]
  6. ATORVASTATIN [Concomitant]

REACTIONS (3)
  - Disease progression [Not Recovered/Not Resolved]
  - Sinusitis [Not Recovered/Not Resolved]
  - Pharyngitis [Not Recovered/Not Resolved]
